FAERS Safety Report 6605196-9 (Version None)
Quarter: 2010Q1

REPORT INFORMATION
  Report Type: 
  Country: None (occurrence: None)
  Receive Date: 20100226
  Receipt Date: 20100219
  Transmission Date: 20100710
  Serious: Yes (Hospitalization)
  Sender: FDA-Public Use
  Company Number: US-WATSON-2010-01982

PATIENT
  Age: 20 Year
  Sex: Female

DRUGS (2)
  1. MICROGESTIN 1.5/30-21 (WATSON LABORATORIES) [Suspect]
     Indication: CONTRACEPTION
     Dosage: 1 TABLET, DAILY
     Route: 048
     Dates: start: 20100211, end: 20100218
  2. MICROGESTIN 1.5/30-21 (WATSON LABORATORIES) [Suspect]
     Dosage: 1 TABLET, DAILY
     Route: 048
     Dates: start: 20100101, end: 20100204

REACTIONS (6)
  - CARDIAC FAILURE [None]
  - DYSPNOEA [None]
  - GENERALISED OEDEMA [None]
  - HEART TRANSPLANT REJECTION [None]
  - RENAL FAILURE ACUTE [None]
  - TRICUSPID VALVE INCOMPETENCE [None]
